FAERS Safety Report 4451537-0 (Version None)
Quarter: 2004Q3

REPORT INFORMATION
  Report Type: 
  Country: None (occurrence: None)
  Receive Date: 20040916
  Receipt Date: 20040908
  Transmission Date: 20050211
  Serious: Yes (Hospitalization)
  Sender: FDA-Public Use
  Company Number: GB-BRISTOL-MYERS SQUIBB COMPANY-12695185

PATIENT
  Sex: Male

DRUGS (8)
  1. CISPLATIN [Suspect]
     Indication: CARCINOMA
     Route: 042
     Dates: start: 20040603, end: 20040603
  2. NAVELBINE [Suspect]
     Indication: CARCINOMA
     Route: 042
     Dates: start: 20040603, end: 20040603
  3. DEXAMETHASONE [Concomitant]
  4. ASPIRIN [Concomitant]
  5. IRBESARTAN [Concomitant]
  6. METOCLOPRAMIDE [Concomitant]
  7. TEMAZEPAM [Concomitant]
  8. PARACETAMOL [Concomitant]

REACTIONS (6)
  - CONSTIPATION [None]
  - HYPONATRAEMIA [None]
  - INAPPROPRIATE ANTIDIURETIC HORMONE SECRETION [None]
  - NAUSEA [None]
  - NEUROPATHY PERIPHERAL [None]
  - VOMITING [None]
